FAERS Safety Report 10444414 (Version 1)
Quarter: 2014Q3

REPORT INFORMATION
  Report Type: Spontaneous
  Country: US (occurrence: None)
  Receive Date: 20140909
  Receipt Date: 20140909
  Transmission Date: 20150326
  Serious: Yes (Disabling, Other)
  Sender: FDA-Public Use
  Company Number: None

PATIENT
  Age: 57 Year
  Sex: Female

DRUGS (8)
  1. NEXIUM [Concomitant]
     Active Substance: ESOMEPRAZOLE MAGNESIUM
  2. DEPO-MEDROL [Suspect]
     Active Substance: METHYLPREDNISOLONE ACETATE
     Indication: BURSITIS
     Dosage: INJECTED, INJECTION
     Dates: start: 20140317
  3. TRAMODOL [Concomitant]
  4. ANTIHISTMINE [Concomitant]
  5. VIVAL DO 01 [Concomitant]
  6. OMEGA RED [Concomitant]
  7. XANIX [Concomitant]
  8. DEPO-MEDROL [Suspect]
     Active Substance: METHYLPREDNISOLONE ACETATE
     Indication: MUSCULOSKELETAL PAIN
     Dosage: INJECTED, INJECTION
     Dates: start: 20140317

REACTIONS (11)
  - Vision blurred [None]
  - Swelling [None]
  - Urticaria [None]
  - Impaired work ability [None]
  - Rash [None]
  - Blood pressure increased [None]
  - Joint stiffness [None]
  - Somnolence [None]
  - Mood swings [None]
  - Palpitations [None]
  - Anxiety [None]

NARRATIVE: CASE EVENT DATE: 20140317
